FAERS Safety Report 5853562-1 (Version None)
Quarter: 2008Q3

REPORT INFORMATION
  Report Type: 
  Country: None (occurrence: None)
  Receive Date: 20080822
  Receipt Date: 20080814
  Transmission Date: 20090109
  Serious: Yes (Hospitalization)
  Sender: FDA-Public Use
  Company Number: BR-JNJFOC-20080803272

PATIENT
  Age: 38 Year
  Sex: Female

DRUGS (2)
  1. FENTANYL CITRATE [Suspect]
     Indication: ANALGESIA
     Route: 037
  2. BUPIVACAINE [Suspect]
     Indication: ANALGESIA
     Route: 037

REACTIONS (1)
  - ANAPHYLACTOID SYNDROME OF PREGNANCY [None]
